FAERS Safety Report 11009825 (Version 1)
Quarter: 2015Q2

REPORT INFORMATION
  Report Type: Spontaneous
  Country: PL (occurrence: PL)
  Receive Date: 20150410
  Receipt Date: 20150410
  Transmission Date: 20150821
  Serious: Yes (Life-Threatening, Other)
  Sender: FDA-Public Use
  Company Number: PL-TEVA-552468ISR

PATIENT
  Age: 29 Year
  Sex: Male

DRUGS (5)
  1. ETOPOSIDE. [Suspect]
     Active Substance: ETOPOSIDE
     Dosage: 4 CYCLES OF CHEMOTHERAPY
  2. BLEOMYCIN [Suspect]
     Active Substance: BLEOMYCIN SULFATE
     Dosage: 4 CYCLES OF CHEMOTHERAPY
  3. ENOXAPARINE [Concomitant]
     Active Substance: ENOXAPARIN
     Indication: THROMBOSIS PROPHYLAXIS
     Dosage: 40 MILLIGRAM DAILY;
     Route: 058
  4. CISPLATIN. [Suspect]
     Active Substance: CISPLATIN
     Dosage: 4 CYCLES OF CHEMOTHERAPY
  5. HEPARIN [Concomitant]
     Active Substance: HEPARIN SODIUM
     Indication: ANTICOAGULANT THERAPY

REACTIONS (5)
  - Neutropenia [Unknown]
  - Ventricular arrhythmia [Recovered/Resolved]
  - Circulatory collapse [Recovered/Resolved]
  - Pulmonary embolism [Unknown]
  - Infection [Unknown]
